FAERS Safety Report 9084700 (Version 1)
Quarter: 2013Q1

REPORT INFORMATION
  Report Type: Report from Study
  Country: US (occurrence: US)
  Receive Date: 20130131
  Receipt Date: 20130131
  Transmission Date: 20140127
  Serious: Yes (Other)
  Sender: FDA-Public Use
  Company Number: US-ABBOTT-12P-163-0963391-00

PATIENT
  Sex: Male
  Weight: 71.73 kg

DRUGS (2)
  1. HUMIRA 40 MG/0.8 ML PEN [Suspect]
     Indication: CROHN^S DISEASE
     Dosage: ON THE 1ST AND 15TH OF THE MONTH, PER PATIENT
     Dates: start: 2007
  2. LOMOTIL [Concomitant]
     Indication: DIARRHOEA
     Dosage: 1-2, AS NEEDED

REACTIONS (6)
  - Eye muscle operation [Recovered/Resolved]
  - Injection site pruritus [Recovered/Resolved]
  - Injection site pain [Unknown]
  - Injection site pain [Unknown]
  - Hypersensitivity [Unknown]
  - Hypertension [Unknown]
